FAERS Safety Report 17833343 (Version 1)
Quarter: 2020Q2

REPORT INFORMATION
  Report Type: Spontaneous
  Country: CN (occurrence: CN)
  Receive Date: 20200528
  Receipt Date: 20200528
  Transmission Date: 20200714
  Serious: Yes (Hospitalization)
  Sender: FDA-Public Use
  Company Number: CN-BAXTER-2020BAX010859

PATIENT
  Age: 4 Year
  Sex: Male
  Weight: 19 kg

DRUGS (14)
  1. HOLOXAN [Suspect]
     Active Substance: IFOSFAMIDE
     Indication: MEDULLOBLASTOMA RECURRENT
     Dosage: DAY 1, HOLOXAN 1800 MG + 0.9% SODIUM CHLORIDE 95 ML
     Route: 041
     Dates: start: 20200512, end: 20200512
  2. HOLOXAN [Suspect]
     Active Substance: IFOSFAMIDE
     Dosage: DAY 2-3, DOSE RE-INTRODUCED, HOLOXAN 1800 MG + 0.9% SODIUM CHLORIDE 95 ML
     Route: 041
     Dates: start: 20200513, end: 20200514
  3. 0.9% SODIUM CHLORIDE INJECTION [Suspect]
     Active Substance: SODIUM CHLORIDE
     Dosage: ONDANSETRON 3.8 MG + 0. 9% SODIUM CHLORIDE 25 ML
     Route: 041
     Dates: start: 20200512, end: 20200514
  4. 5% GLUCOSE  INJECTION [Suspect]
     Active Substance: DEXTROSE
     Indication: MEDICATION DILUTION
     Dosage: DAY 3, CARBOPLATIN 426 MG + 5% GLUCOSE 250 ML
     Route: 041
     Dates: start: 20200514, end: 20200514
  5. 0.9% SODIUM CHLORIDE INJECTION [Suspect]
     Active Substance: SODIUM CHLORIDE
     Indication: MEDICATION DILUTION
     Dosage: DAY 1, HOLOXAN 1800 MG + 0.9% SODIUM CHLORIDE 95 ML
     Route: 041
     Dates: start: 20200512, end: 20200512
  6. 0.9% SODIUM CHLORIDE INJECTION [Suspect]
     Active Substance: SODIUM CHLORIDE
     Dosage: DAY 2-3, DOSE RE-INTRODUCED, HOLOXAN 1800 MG + 0.9% SODIUM CHLORIDE 95 ML
     Route: 041
     Dates: start: 20200513, end: 20200514
  7. ETOPOSIDE. [Suspect]
     Active Substance: ETOPOSIDE
     Indication: MEDULLOBLASTOMA RECURRENT
     Dosage: DAY 1, ETOPOSIDE 76 MG + 0.9% SODIUM CHLORIDE 300 ML
     Route: 041
     Dates: start: 20200512, end: 20200512
  8. 0.9% SODIUM CHLORIDE INJECTION [Suspect]
     Active Substance: SODIUM CHLORIDE
     Dosage: DAY 1, ETOPOSIDE 76 MG + 0.9% SODIUM CHLORIDE 300 ML
     Route: 041
     Dates: start: 20200512, end: 20200512
  9. 0.9% SODIUM CHLORIDE INJECTION [Suspect]
     Active Substance: SODIUM CHLORIDE
     Dosage: DOSE RE-INTRODUCED, ONDANSETRON + 0.9% SODIUM CHLORIDE
     Route: 041
  10. BOERDING [CARBOPLATIN] [Suspect]
     Active Substance: CARBOPLATIN
     Indication: MEDULLOBLASTOMA RECURRENT
     Dosage: DAY 3, CARBOPLATIN 426 MG + 5% GLUCOSE 250 ML
     Route: 041
     Dates: start: 20200514, end: 20200514
  11. ONDANSETRON HYDROCHLORIDE. [Suspect]
     Active Substance: ONDANSETRON HYDROCHLORIDE
     Indication: ANTIEMETIC SUPPORTIVE CARE
     Dosage: ONDANSETRON 3.8 MG + 0.9% SODIUM CHLORIDE 25 ML
     Route: 041
     Dates: start: 20200512, end: 20200514
  12. ONDANSETRON HYDROCHLORIDE. [Suspect]
     Active Substance: ONDANSETRON HYDROCHLORIDE
     Dosage: DOSE RE-INTRODUCED, ONDANSETRON + 0.9% SODIUM CHLORIDE
     Route: 041
  13. 0.9% SODIUM CHLORIDE INJECTION [Suspect]
     Active Substance: SODIUM CHLORIDE
     Dosage: DAY 2-3, DOSE RE-INTRODUCED, ETOPOSIDE 76 MG + 0.9% SODIUM CHLORIDE 300 ML
     Route: 041
     Dates: start: 20200513, end: 20200514
  14. ETOPOSIDE. [Suspect]
     Active Substance: ETOPOSIDE
     Dosage: DAY 2-3, DOSE RE-INTRODUCED, ETOPOSIDE 76 MG + 0.9% SODIUM CHLORIDE 300 ML
     Route: 041
     Dates: start: 20200513, end: 20200514

REACTIONS (3)
  - Pyrexia [Recovered/Resolved]
  - Seizure [Recovering/Resolving]
  - Cytopenia [Recovering/Resolving]

NARRATIVE: CASE EVENT DATE: 20200513
